FAERS Safety Report 10190272 (Version 3)
Quarter: 2014Q3

REPORT INFORMATION
  Report Type: Report from Study
  Country: US (occurrence: US)
  Receive Date: 20140522
  Receipt Date: 20140702
  Transmission Date: 20150326
  Serious: Yes (Other)
  Sender: FDA-Public Use
  Company Number: US-BRISTOL-MYERS SQUIBB COMPANY-20750014

PATIENT
  Age: 84 Year
  Sex: Male

DRUGS (6)
  1. IPILIMUMAB [Suspect]
     Active Substance: IPILIMUMAB
     Indication: METASTATIC MALIGNANT MELANOMA
     Dosage: FIRST DOSE:242MG?SECOND DOSE:237MG 21APR14
     Route: 042
     Dates: start: 20140402, end: 20140421
  2. EFUDEX [Concomitant]
     Active Substance: FLUOROURACIL
     Route: 061
     Dates: start: 20120730
  3. DESONIDE. [Concomitant]
     Active Substance: DESONIDE
     Dates: start: 20120730
  4. VITAMIN [Concomitant]
     Active Substance: VITAMINS
     Dosage: EVOA VITAMIN
     Dates: start: 20140325
  5. NEPAFENAC [Concomitant]
     Active Substance: NEPAFENAC
  6. LANSOPRAZOLE. [Concomitant]
     Active Substance: LANSOPRAZOLE
     Dates: start: 20120322

REACTIONS (1)
  - Macular oedema [Recovered/Resolved]

NARRATIVE: CASE EVENT DATE: 20140502
